FAERS Safety Report 25652524 (Version 2)
Quarter: 2025Q4

REPORT INFORMATION
  Report Type: Report from Study
  Country: US (occurrence: US)
  Receive Date: 20250807
  Receipt Date: 20251104
  Transmission Date: 20260118
  Serious: Yes (Other)
  Sender: ABBVIE
  Company Number: US-ABBVIE-6402808

PATIENT
  Age: 72 Year
  Sex: Male

DRUGS (2)
  1. SKYRIZI [Suspect]
     Active Substance: RISANKIZUMAB-RZAA
     Indication: Crohn^s disease
     Route: 058
     Dates: start: 20240629
  2. SKYRIZI [Suspect]
     Active Substance: RISANKIZUMAB-RZAA
     Route: 058

REACTIONS (1)
  - Prostatomegaly [Recovering/Resolving]

NARRATIVE: CASE EVENT DATE: 20250811
